FAERS Safety Report 14132903 (Version 1)
Quarter: 2017Q4

REPORT INFORMATION
  Report Type: Spontaneous
  Country: NL (occurrence: NL)
  Receive Date: 20171027
  Receipt Date: 20171027
  Transmission Date: 20180321
  Serious: Yes (Other)
  Sender: FDA-Public Use
  Company Number: NL-ROCHE-1992554

PATIENT
  Sex: Female

DRUGS (11)
  1. TERRA-CORTRIL (UNITED STATES) [Concomitant]
     Indication: ASTHMA
     Dosage: 2XDD ILOG
     Route: 065
     Dates: start: 20170518
  2. ESBRIET [Suspect]
     Active Substance: PIRFENIDONE
     Indication: IDIOPATHIC PULMONARY FIBROSIS
     Dosage: 6 X 267 MG QD
     Route: 065
     Dates: start: 2015
  3. BUDESONIDE. [Concomitant]
     Active Substance: BUDESONIDE
     Indication: ASTHMA
     Dosage: 2XDD1 INH
     Route: 055
     Dates: start: 20130625
  4. NACLOF [Concomitant]
     Indication: ASTHMA
     Dosage: 3XDD
     Route: 047
     Dates: start: 20170220
  5. PANTOPRAZOL [Concomitant]
     Active Substance: PANTOPRAZOLE SODIUM
     Indication: ASTHMA
     Dosage: 1XDD1
     Route: 048
     Dates: start: 20170526
  6. DICLOFENAC SODIUM. [Concomitant]
     Active Substance: DICLOFENAC SODIUM
     Indication: ASTHMA
     Dosage: 3XDD
     Route: 047
     Dates: start: 20151003
  7. CHLORAMPHENICOL [Concomitant]
     Active Substance: CHLORAMPHENICOL
     Indication: ASTHMA
     Dosage: 4XDD IROG
     Route: 047
     Dates: start: 20170928
  8. DEXAMETHASONE. [Concomitant]
     Active Substance: DEXAMETHASONE
     Indication: ASTHMA
     Dosage: 1XDD IBOG
     Route: 047
     Dates: start: 20150918
  9. OFLOXACIN. [Concomitant]
     Active Substance: OFLOXACIN
     Indication: ASTHMA
     Dosage: 4XDD IROG
     Route: 047
     Dates: start: 20170815
  10. TOBRADEX [Concomitant]
     Active Substance: DEXAMETHASONE\TOBRAMYCIN
     Indication: ASTHMA
     Dosage: 2XDD IROG
     Route: 047
     Dates: start: 20170819
  11. FUSIDIN [Concomitant]
     Indication: ASTHMA
     Dosage: 2XDD EYE OINTMENT
     Route: 047
     Dates: start: 20170605

REACTIONS (2)
  - Chalazion [Unknown]
  - Cataract [Unknown]
